FAERS Safety Report 6225712-9 (Version None)
Quarter: 2009Q2

REPORT INFORMATION
  Report Type: 
  Country: None (occurrence: None)
  Receive Date: 20090612
  Receipt Date: 20090423
  Transmission Date: 20091009
  Serious: No
  Sender: FDA-Public Use
  Company Number: US-ABBOTT-09P-163-0569703-00

PATIENT
  Sex: Female
  Weight: 47.67 kg

DRUGS (7)
  1. HUMIRA [Suspect]
     Indication: CROHN'S DISEASE
     Route: 058
     Dates: start: 20090209
  2. HUMIRA [Suspect]
     Indication: COLITIS ULCERATIVE
  3. PREDNISONE [Concomitant]
     Indication: CROHN'S DISEASE
     Dosage: STARTED ON 40MG TAPERED 10MG Q 3 WEEKS
     Route: 048
  4. PREDNISONE [Concomitant]
     Indication: COLITIS ULCERATIVE
     Route: 048
  5. PREDNISONE [Concomitant]
     Route: 048
  6. PREDNISONE [Concomitant]
     Route: 048
  7. UNKNOWN INHALER [Concomitant]
     Indication: ASTHMA
     Route: 055

REACTIONS (1)
  - INJECTION SITE PAIN [None]
